FAERS Safety Report 4578260-6 (Version None)
Quarter: 2005Q1

REPORT INFORMATION
  Report Type: 
  Country: None (occurrence: None)
  Receive Date: 20050211
  Receipt Date: 20040914
  Transmission Date: 20050727
  Serious: Yes (Hospitalization, Other)
  Sender: FDA-Public Use
  Company Number: RU-NOVOPROD-239296

PATIENT
  Age: 0 Day
  Sex: Female
  Weight: 3 kg

DRUGS (4)
  1. ACTRAPID PENFILL HM(GE) 3.0 ML [Suspect]
     Indication: DIABETES MELLITUS
     Dosage: 13 IU, QD
     Route: 015
     Dates: start: 20040320, end: 20040910
  2. PROTAPHANE HM PENFILL [Concomitant]
     Indication: DIABETES MELLITUS INSULIN-DEPENDENT
     Dosage: 16 IU, QD
     Route: 015
     Dates: start: 20040320, end: 20040910
  3. PROTAPHANE HM PENFILL [Concomitant]
     Dosage: 18 IU, QD
     Route: 015
     Dates: start: 20040911
  4. INOSINE [Concomitant]

REACTIONS (9)
  - APGAR SCORE LOW [None]
  - CENTRAL NERVOUS SYSTEM LESION [None]
  - DIABETIC FOETOPATHY [None]
  - DRUG EXPOSURE DURING PREGNANCY [None]
  - GENERALISED OEDEMA [None]
  - HYPOGLYCAEMIA NEONATAL [None]
  - ISCHAEMIA [None]
  - JAUNDICE NEONATAL [None]
  - PREMATURE BABY [None]
